FAERS Safety Report 17916322 (Version 1)
Quarter: 2020Q2

REPORT INFORMATION
  Report Type: Spontaneous
  Country: BG (occurrence: BG)
  Receive Date: 20200619
  Receipt Date: 20200619
  Transmission Date: 20200714
  Serious: Yes (Other)
  Sender: FDA-Public Use
  Company Number: BG-ASTRAZENECA-2020SE77540

PATIENT
  Sex: Female

DRUGS (1)
  1. TAGRISSO [Suspect]
     Active Substance: OSIMERTINIB
     Route: 048

REACTIONS (4)
  - Metastases to pancreas [Unknown]
  - Lung neoplasm malignant [Unknown]
  - Malignant neoplasm progression [Unknown]
  - Metastases to bone [Unknown]
